FAERS Safety Report 5905481-X (Version None)
Quarter: 2008Q4

REPORT INFORMATION
  Report Type: 
  Country: None (occurrence: None)
  Receive Date: 20081002
  Receipt Date: 20080925
  Transmission Date: 20090506
  Serious: No
  Sender: FDA-Public Use
  Company Number: US-BAYER-200826257NA

PATIENT
  Sex: Female

DRUGS (1)
  1. LEUKINE [Suspect]
     Indication: MYELODYSPLASTIC SYNDROME

REACTIONS (5)
  - EYE SWELLING [None]
  - INJECTION SITE REACTION [None]
  - PYREXIA [None]
  - SWELLING [None]
  - SWELLING FACE [None]
